FAERS Safety Report 6233730-X (Version None)
Quarter: 2009Q2

REPORT INFORMATION
  Report Type: 
  Country: None (occurrence: None)
  Receive Date: 20090617
  Receipt Date: 20090604
  Transmission Date: 20091009
  Serious: Yes (Other)
  Sender: FDA-Public Use
  Company Number: US-AMGEN-QUU350253

PATIENT
  Sex: Female

DRUGS (1)
  1. ENBREL [Suspect]
     Indication: PSORIASIS
     Route: 058
     Dates: start: 20090401, end: 20090503

REACTIONS (29)
  - ANAPHYLACTIC REACTION [None]
  - CHEST DISCOMFORT [None]
  - CONJUNCTIVITIS VIRAL [None]
  - CONTUSION [None]
  - EAR INFECTION [None]
  - EYE DISCHARGE [None]
  - EYE INFLAMMATION [None]
  - EYE PRURITUS [None]
  - FEELING HOT [None]
  - FOLLICULITIS [None]
  - INJECTION SITE ERYTHEMA [None]
  - INJECTION SITE SWELLING [None]
  - INJECTION SITE WARMTH [None]
  - MIGRAINE [None]
  - NAUSEA [None]
  - OEDEMA PERIPHERAL [None]
  - ORAL HERPES [None]
  - PAIN [None]
  - PHARYNGITIS [None]
  - PHOTOSENSITIVITY REACTION [None]
  - SCLERAL HAEMORRHAGE [None]
  - SCLERAL HYPERAEMIA [None]
  - SINUSITIS [None]
  - SKIN EXFOLIATION [None]
  - SWELLING FACE [None]
  - TONGUE DISORDER [None]
  - URTICARIA [None]
  - VISION BLURRED [None]
  - VISUAL IMPAIRMENT [None]
